FAERS Safety Report 23599296 (Version 1)
Quarter: 2024Q1

REPORT INFORMATION
  Report Type: Report from Study
  Country: US (occurrence: US)
  Receive Date: 20240306
  Receipt Date: 20240306
  Transmission Date: 20240410
  Serious: No
  Sender: FDA-Public Use
  Company Number: US-BIOVITRUM-2024-US-003404

PATIENT
  Age: 8 Year
  Sex: Male

DRUGS (3)
  1. KINERET [Suspect]
     Active Substance: ANAKINRA
     Indication: Epilepsy
     Dosage: Q 12 HOURS
     Route: 058
     Dates: start: 20230308, end: 20240222
  2. KINERET [Suspect]
     Active Substance: ANAKINRA
     Indication: Focal dyscognitive seizures
  3. KINERET [Suspect]
     Active Substance: ANAKINRA
     Indication: Status epilepticus

REACTIONS (3)
  - Diarrhoea [Recovered/Resolved]
  - Accident [Unknown]
  - Off label use [Recovered/Resolved]

NARRATIVE: CASE EVENT DATE: 20230308
